FAERS Safety Report 10330978 (Version 1)
Quarter: 2014Q3

REPORT INFORMATION
  Report Type: Spontaneous
  Country: DE (occurrence: DE)
  Receive Date: 20140722
  Receipt Date: 20140722
  Transmission Date: 20150326
  Serious: Yes (Congenital Anomaly, Other)
  Sender: FDA-Public Use
  Company Number: DE-MYLANLABS-2014S1016284

PATIENT
  Age: 1 Day
  Sex: Female
  Weight: 1.9 kg

DRUGS (3)
  1. RHOPHYLAC [Concomitant]
     Active Substance: HUMAN RHO(D) IMMUNE GLOBULIN
     Indication: PROPHYLAXIS AGAINST RH ISOIMMUNISATION
     Dosage: 300 [UG/D ]
     Route: 064
     Dates: start: 20131209, end: 20131209
  2. LEVETIRACETAM. [Suspect]
     Active Substance: LEVETIRACETAM
     Indication: EPILEPSY
     Dosage: 500 [MG/D ]/ 2 X 250 MG/D
     Route: 064
     Dates: start: 20130516, end: 20131228
  3. FOLIC ACID. [Concomitant]
     Active Substance: FOLIC ACID
     Indication: PROPHYLAXIS OF NEURAL TUBE DEFECT
     Dosage: 0.8 [MG/D ]/ REDUCED TO 0.4 MG/D
     Route: 064
     Dates: start: 20130614, end: 20131228

REACTIONS (8)
  - Premature baby [Recovering/Resolving]
  - Pericardial effusion [Not Recovered/Not Resolved]
  - Apnoea neonatal [Recovered/Resolved]
  - Blood creatine phosphokinase MB increased [Not Recovered/Not Resolved]
  - Bradycardia neonatal [Recovered/Resolved]
  - Patent ductus arteriosus [Recovered/Resolved]
  - Laryngomalacia [Recovered/Resolved]
  - Foetal exposure during pregnancy [Unknown]

NARRATIVE: CASE EVENT DATE: 20131228
